FAERS Safety Report 20594453 (Version 1)
Quarter: 2022Q1

REPORT INFORMATION
  Report Type: Report from Study
  Country: US (occurrence: US)
  Receive Date: 20220315
  Receipt Date: 20220315
  Transmission Date: 20220423
  Serious: Yes (Death)
  Sender: FDA-Public Use
  Company Number: US-NOVARTISPH-NVSC2022US059206

PATIENT
  Sex: Male
  Weight: 162 kg

DRUGS (1)
  1. TREPROSTINIL [Suspect]
     Active Substance: TREPROSTINIL
     Indication: Product used for unknown indication
     Dosage: CONTINUOUS (13.75 NG/KG/MIN)
     Route: 058
     Dates: start: 20220218

REACTIONS (1)
  - Death [Fatal]
